FAERS Safety Report 10689055 (Version 3)
Quarter: 2015Q1

REPORT INFORMATION
  Report Type: Spontaneous
  Country: US (occurrence: US)
  Receive Date: 20150104
  Receipt Date: 20150202
  Transmission Date: 20150720
  Serious: No
  Sender: FDA-Public Use
  Company Number: US-GLAXOSMITHKLINE-A1077713A

PATIENT
  Age: 80 Year
  Sex: Female

DRUGS (18)
  1. VENTOLIN HFA [Suspect]
     Active Substance: ALBUTEROL SULFATE
     Dosage: UNK
     Route: 055
     Dates: start: 20131229
  2. TRIAMTERENE. [Concomitant]
     Active Substance: TRIAMTERENE
  3. LOSARTAN [Concomitant]
     Active Substance: LOSARTAN
  4. CODEINE + GUAIPHENESIN [Concomitant]
  5. HYDROCORTISONE. [Concomitant]
     Active Substance: HYDROCORTISONE
  6. LORAZEPAM. [Concomitant]
     Active Substance: LORAZEPAM
  7. LUNESTA [Concomitant]
     Active Substance: ESZOPICLONE
  8. SPIRIVA [Concomitant]
     Active Substance: TIOTROPIUM BROMIDE MONOHYDRATE
  9. FEXOFENADINE [Concomitant]
     Active Substance: FEXOFENADINE\FEXOFENADINE HYDROCHLORIDE
  10. ACCOLATE [Concomitant]
     Active Substance: ZAFIRLUKAST
  11. ASMANEX [Concomitant]
     Active Substance: MOMETASONE FUROATE
  12. SINGULAIR [Concomitant]
     Active Substance: MONTELUKAST SODIUM
  13. OMEPRAZOLE. [Concomitant]
     Active Substance: OMEPRAZOLE
  14. FLUTICASONE PROPIONATE. [Concomitant]
     Active Substance: FLUTICASONE PROPIONATE
  15. VENTOLIN HFA [Suspect]
     Active Substance: ALBUTEROL SULFATE
     Indication: CHRONIC OBSTRUCTIVE PULMONARY DISEASE
     Dosage: 4 PUFF(S), 1D
     Route: 055
     Dates: start: 201312
  16. VENTOLIN HFA [Suspect]
     Active Substance: ALBUTEROL SULFATE
     Indication: ASTHMA
     Dosage: UNK
     Dates: start: 201312
  17. NORCO [Concomitant]
     Active Substance: ACETAMINOPHEN\HYDROCODONE BITARTRATE
  18. SIMVASTATIN. [Concomitant]
     Active Substance: SIMVASTATIN

REACTIONS (9)
  - Inhalation therapy [Not Recovered/Not Resolved]
  - Product quality issue [Unknown]
  - Asthma [Not Recovered/Not Resolved]
  - Upper-airway cough syndrome [Not Recovered/Not Resolved]
  - Dyspnoea [Not Recovered/Not Resolved]
  - Medication error [Unknown]
  - Overdose [Not Recovered/Not Resolved]
  - Nasopharyngitis [Not Recovered/Not Resolved]
  - Drug administration error [Not Recovered/Not Resolved]

NARRATIVE: CASE EVENT DATE: 201405
